FAERS Safety Report 4644705-6 (Version None)
Quarter: 2005Q2

REPORT INFORMATION
  Report Type: 
  Country: None (occurrence: None)
  Receive Date: 20050426
  Receipt Date: 20050419
  Transmission Date: 20051028
  Serious: Yes (Hospitalization)
  Sender: FDA-Public Use
  Company Number: MX-JNJFOC-20050404963

PATIENT
  Age: 26 Year
  Sex: Female
  Weight: 89 kg

DRUGS (2)
  1. SPORANOX [Suspect]
     Indication: FUNGAL INFECTION
     Route: 049
     Dates: start: 20050115, end: 20050226
  2. LEVOFLOXACIN [Suspect]
     Indication: FUNGAL INFECTION
     Dates: start: 20050115, end: 20050226

REACTIONS (2)
  - HAEMOLYSIS [None]
  - HEPATIC ENZYME INCREASED [None]
